FAERS Safety Report 25912774 (Version 2)
Quarter: 2025Q4

REPORT INFORMATION
  Report Type: Spontaneous
  Country: US (occurrence: US)
  Receive Date: 20251013
  Receipt Date: 20251121
  Transmission Date: 20260117
  Serious: No
  Sender: Kenvue
  Company Number: US-KENVUE-20250914182

PATIENT
  Sex: Male

DRUGS (1)
  1. IMODIUM MULTI-SYMPTOM RELIEF [Suspect]
     Active Substance: DIMETHICONE\LOPERAMIDE HYDROCHLORIDE
     Indication: Prophylaxis against diarrhoea
     Dosage: 1 DOSAGE FORM, THRICE A DAY (1 CAPLET EACH,THREE TIMES,BEEN USING THIS YEARS AGO  )

REACTIONS (3)
  - Product use in unapproved indication [Unknown]
  - Product lot number issue [Unknown]
  - Product expiration date issue [Unknown]
